FAERS Safety Report 5314425-3 (Version None)
Quarter: 2007Q2

REPORT INFORMATION
  Report Type: 
  Country: None (occurrence: None)
  Receive Date: 20070430
  Receipt Date: 20070430
  Transmission Date: 20071010
  Serious: Yes (Hospitalization)
  Sender: FDA-Public Use
  Company Number: None

PATIENT
  Sex: Female
  Weight: 43 kg

DRUGS (5)
  1. AVASTIN [Suspect]
     Indication: BREAST CANCER METASTATIC
     Dosage: 10 MG/KG (400MG ) EVERY 2 WKS IV
     Route: 042
     Dates: start: 20061101, end: 20070124
  2. ABRAXANE [Suspect]
     Indication: BREAST CANCER METASTATIC
     Dosage: 100MG/M2 (135 MG) WEEKLY IV
     Route: 042
     Dates: start: 20070112, end: 20070208
  3. CARBOPLATIN [Concomitant]
  4. ZOMETA [Concomitant]
  5. XELODA [Concomitant]

REACTIONS (3)
  - ASCITES [None]
  - HEPATIC CIRRHOSIS [None]
  - MALIGNANT ASCITES [None]
